FAERS Safety Report 18846358 (Version 3)
Quarter: 2021Q1

REPORT INFORMATION
  Report Type: Spontaneous
  Country: JP (occurrence: JP)
  Receive Date: 20210203
  Receipt Date: 20210308
  Transmission Date: 20210419
  Serious: Yes (Death, Hospitalization, Other)
  Sender: FDA-Public Use
  Company Number: JP-SAKK-2021SA031616AA

PATIENT
  Age: 59 Year
  Sex: Female

DRUGS (1)
  1. RASURITEK 1.5MG [Suspect]
     Active Substance: RASBURICASE
     Indication: ACUTE MYELOID LEUKAEMIA
     Dosage: 12 MG, 1X
     Route: 041
     Dates: start: 20210121, end: 20210121

REACTIONS (1)
  - Cerebral infarction [Fatal]

NARRATIVE: CASE EVENT DATE: 20210123
